FAERS Safety Report 14577453 (Version 1)
Quarter: 2018Q1

REPORT INFORMATION
  Report Type: Spontaneous
  Country: US (occurrence: US)
  Receive Date: 20180226
  Receipt Date: 20180226
  Transmission Date: 20180509
  Serious: No
  Sender: FDA-Public Use
  Company Number: None

PATIENT
  Age: 69 Year
  Sex: Female
  Weight: 77.85 kg

DRUGS (3)
  1. CIPROFLOXACIN. [Suspect]
     Active Substance: CIPROFLOXACIN
     Indication: NEPHROLITHIASIS
     Dosage: ?          QUANTITY:6 TABLET(S);?
     Route: 048
     Dates: start: 20180124, end: 20180127
  2. LISINOPRIL. [Concomitant]
     Active Substance: LISINOPRIL
  3. TUMS [Concomitant]
     Active Substance: CALCIUM CARBONATE

REACTIONS (6)
  - Dyspnoea [None]
  - Abdominal pain upper [None]
  - Chromaturia [None]
  - Pyrexia [None]
  - Oropharyngeal pain [None]
  - Decreased appetite [None]

NARRATIVE: CASE EVENT DATE: 20180124
